FAERS Safety Report 17862059 (Version 35)
Quarter: 2025Q2

REPORT INFORMATION
  Report Type: Report from Study
  Country: US (occurrence: US)
  Receive Date: 20200604
  Receipt Date: 20250619
  Transmission Date: 20250717
  Serious: Yes (Other)
  Sender: TAKEDA
  Company Number: US-SHIRE-US202018022

PATIENT
  Age: 73 Year
  Sex: Female
  Weight: 53 kg

DRUGS (28)
  1. HUMAN IMMUNOGLOBULIN G [Suspect]
     Active Substance: HUMAN IMMUNOGLOBULIN G
     Indication: Immunodeficiency common variable
     Dosage: 6 GRAM,1/WEEK
     Dates: start: 20200413
  2. HUMAN IMMUNOGLOBULIN G [Suspect]
     Active Substance: HUMAN IMMUNOGLOBULIN G
     Dosage: 6 GRAM, Q2WEEKS
  3. HUMAN IMMUNOGLOBULIN G [Suspect]
     Active Substance: HUMAN IMMUNOGLOBULIN G
     Dosage: 6 GRAM, 1/WEEK
  4. COVID-19 VACCINE NOS [Suspect]
     Active Substance: COVID-19 VACCINE
     Indication: Product used for unknown indication
  5. ACETAMINOPHEN [Concomitant]
     Active Substance: ACETAMINOPHEN
  6. PULMICORT FLEXHALER [Concomitant]
     Active Substance: BUDESONIDE
  7. COENZYME Q10 [Concomitant]
     Active Substance: DIETARY SUPPLEMENT\UBIDECARENONE
  8. BREO ELLIPTA [Concomitant]
     Active Substance: FLUTICASONE FUROATE\VILANTEROL TRIFENATATE
  9. ATROVENT HFA [Concomitant]
     Active Substance: IPRATROPIUM BROMIDE
  10. TAVABOROLE [Concomitant]
     Active Substance: TAVABOROLE
  11. ESTRIOL [Concomitant]
     Active Substance: ESTRIOL
  12. CYANOCOBALAMIN [Concomitant]
     Active Substance: CYANOCOBALAMIN
  13. RETIN-A [Concomitant]
     Active Substance: TRETINOIN
  14. CHOLESTYRAMINE [Concomitant]
     Active Substance: CHOLESTYRAMINE
  15. ALBUTEROL SULFATE [Concomitant]
     Active Substance: ALBUTEROL SULFATE
  16. LOSARTAN POTASSIUM [Concomitant]
     Active Substance: LOSARTAN POTASSIUM
  17. ALVESCO [Concomitant]
     Active Substance: CICLESONIDE
  18. TEZSPIRE [Concomitant]
     Active Substance: TEZEPELUMAB-EKKO
  19. IMVEXXY [Concomitant]
     Active Substance: ESTRADIOL
  20. PSYLLIUM HUSK [Concomitant]
     Active Substance: PSYLLIUM HUSK
  21. CETIRIZINE HYDROCHLORIDE [Concomitant]
     Active Substance: CETIRIZINE HYDROCHLORIDE
  22. FIORINAL [Concomitant]
     Active Substance: ASPIRIN\BUTALBITAL\CAFFEINE
  23. ZINC [Concomitant]
     Active Substance: ZINC
  24. GABAPENTIN [Concomitant]
     Active Substance: GABAPENTIN
  25. VITAMIN D3 [Concomitant]
     Active Substance: CHOLECALCIFEROL
  26. FLUOROURACIL [Concomitant]
     Active Substance: FLUOROURACIL
  27. PULMICORT TURBUHALER [Concomitant]
     Active Substance: BUDESONIDE
  28. EPINEPHRINE [Concomitant]
     Active Substance: EPINEPHRINE

REACTIONS (37)
  - Pyelonephritis [Unknown]
  - Thrombosis [Unknown]
  - Intentional dose omission [Unknown]
  - Weight decreased [Recovering/Resolving]
  - Temporomandibular pain and dysfunction syndrome [Unknown]
  - Nasopharyngitis [Unknown]
  - Infusion related reaction [Unknown]
  - COVID-19 [Unknown]
  - Fat tissue increased [Unknown]
  - Injection site irritation [Unknown]
  - Infusion site inflammation [Unknown]
  - Cystitis [Unknown]
  - Gastroenteritis viral [Recovering/Resolving]
  - Illness [Unknown]
  - Urinary tract infection [Unknown]
  - Incorrect drug administration rate [Unknown]
  - Product dose omission issue [Unknown]
  - Inappropriate schedule of product administration [Unknown]
  - Product dose omission in error [Unknown]
  - Immunisation reaction [Unknown]
  - Sinusitis [Unknown]
  - Asthma [Not Recovered/Not Resolved]
  - Musculoskeletal stiffness [Unknown]
  - Influenza [Unknown]
  - Injection site warmth [Unknown]
  - Infusion site bruising [Unknown]
  - Infusion site discomfort [Unknown]
  - Injection site swelling [Recovered/Resolved]
  - Pain in extremity [Unknown]
  - Injection site erythema [Recovered/Resolved]
  - Blood pressure increased [Unknown]
  - Injection site pain [Recovered/Resolved]
  - Cough [Unknown]
  - Hyperhidrosis [Unknown]
  - Chills [Unknown]
  - Arthralgia [Unknown]
  - Headache [Unknown]

NARRATIVE: CASE EVENT DATE: 20220912
